FAERS Safety Report 4428293-5 (Version None)
Quarter: 2004Q3

REPORT INFORMATION
  Report Type: 
  Country: None (occurrence: None)
  Receive Date: 20040816
  Receipt Date: 20040816
  Transmission Date: 20050211
  Serious: Yes (Life-Threatening, Hospitalization, Other)
  Sender: FDA-Public Use
  Company Number: None

PATIENT
  Age: 62 Year
  Sex: Female
  Weight: 68.4932 kg

DRUGS (1)
  1. TAXUS EXPRESS 2 MONORAIL CORONARY STENT CORONARY ELUTING STENT 3.0 X 2 [Suspect]

REACTIONS (4)
  - ARTERIOSPASM CORONARY [None]
  - CARDIOVASCULAR DISORDER [None]
  - ELECTROCARDIOGRAM ST SEGMENT ELEVATION [None]
  - PROCEDURAL SITE REACTION [None]
